FAERS Safety Report 13345651 (Version 1)
Quarter: 2017Q1

REPORT INFORMATION
  Report Type: Report from Study
  Country: VN (occurrence: VN)
  Receive Date: 20170317
  Receipt Date: 20170317
  Transmission Date: 20170428
  Serious: Yes (Congenital Anomaly)
  Sender: FDA-Public Use
  Company Number: PHHO2017VN004669

PATIENT

DRUGS (8)
  1. FEXOFENADINE [Concomitant]
     Active Substance: FEXOFENADINE\FEXOFENADINE HYDROCHLORIDE
     Indication: PRURITUS
     Dosage: 50 MG, QD
     Route: 048
     Dates: start: 20160707
  2. TOBRADEX [Concomitant]
     Active Substance: DEXAMETHASONE\TOBRAMYCIN
     Indication: CONJUNCTIVITIS
     Route: 065
     Dates: start: 20161201
  3. BLINDED NO TREATMENT RECEIVED [Suspect]
     Active Substance: INVESTIGATIONAL PRODUCT
     Indication: PSORIATIC ARTHROPATHY
     Dosage: MOTHER: CODE NOT BROKEN
     Route: 064
     Dates: start: 20160616
  4. SYSTANE (HYPROMELLOSE 2910 (4000 MPA.S)) [Concomitant]
     Active Substance: HYPROMELLOSE 2910 (4000 MPA.S)
     Indication: PRODUCT USED FOR UNKNOWN INDICATION
     Dosage: UNK
     Route: 065
     Dates: start: 20161201
  5. BLINDED AIN457 [Suspect]
     Active Substance: SECUKINUMAB
     Indication: PSORIATIC ARTHROPATHY
     Dosage: MOTHER: CODE NOT BROKEN
     Route: 064
     Dates: start: 20160616
  6. MARVELON [Concomitant]
     Active Substance: DESOGESTREL\ETHINYL ESTRADIOL
     Indication: CONTRACEPTION
     Route: 065
  7. BLINDED PLACEBO [Suspect]
     Active Substance: INVESTIGATIONAL PRODUCT
     Indication: PSORIATIC ARTHROPATHY
     Dosage: MOTHER: CODE NOT BROKEN
     Route: 064
     Dates: start: 20160616
  8. ZINNAT [Concomitant]
     Active Substance: CEFUROXIME AXETIL
     Indication: FURUNCLE
     Dosage: 500 MG, QD
     Route: 048
     Dates: start: 20160707, end: 20160712

REACTIONS (3)
  - Foetal heart rate abnormal [Unknown]
  - Foetal exposure during pregnancy [Unknown]
  - Cytogenetic abnormality [Unknown]
